FAERS Safety Report 6888533-X (Version None)
Quarter: 2010Q3

REPORT INFORMATION
  Report Type: 
  Country: None (occurrence: None)
  Receive Date: 20100730
  Receipt Date: 20100720
  Transmission Date: 20110219
  Serious: Yes (Other)
  Sender: FDA-Public Use
  Company Number: US-WATSON-2010-09608

PATIENT
  Age: 56 Year
  Sex: Male

DRUGS (2)
  1. HYDROCODONE BITARTRATE/ACETAMINOPHEN 10/660 (WATSON LABORATORIES) [Suspect]
     Indication: PAIN
     Dosage: 1 TABLET, BID
     Route: 048
     Dates: start: 20100720
  2. HYDROCODONE BITARTRATE/ACETAMINOPHEN 10/660 (WATSON LABORATORIES) [Suspect]
     Dosage: 1 TABLET, BID
     Route: 048
     Dates: end: 20100720

REACTIONS (3)
  - DRUG DEPENDENCE [None]
  - RENAL DISORDER [None]
  - VISION BLURRED [None]
